FAERS Safety Report 7989685-0 (Version None)
Quarter: 2011Q4

REPORT INFORMATION
  Report Type: 
  Country: None (occurrence: None)
  Receive Date: 20111219
  Receipt Date: 20111005
  Transmission Date: 20120403
  Serious: No
  Sender: FDA-Public Use
  Company Number: US-ASTRAZENECA-2011SE59938

PATIENT
  Age: 62 Year
  Sex: Female

DRUGS (1)
  1. CRESTOR [Suspect]
     Route: 048

REACTIONS (5)
  - LOCAL SWELLING [None]
  - BACK PAIN [None]
  - URINE OUTPUT INCREASED [None]
  - ADVERSE DRUG REACTION [None]
  - NOCTURIA [None]
